FAERS Safety Report 8060341-6 (Version None)
Quarter: 2012Q1

REPORT INFORMATION
  Report Type: 
  Country: None (occurrence: None)
  Receive Date: 20120120
  Receipt Date: 20111117
  Transmission Date: 20120608
  Serious: No
  Sender: FDA-Public Use
  Company Number: US-NOVEN-11US003644

PATIENT
  Sex: Female

DRUGS (1)
  1. FENTANYL [Suspect]
     Indication: BACK INJURY
     Dosage: 25 UG/HR, Q72HRS
     Route: 062
     Dates: start: 20111116

REACTIONS (1)
  - RASH [None]
